FAERS Safety Report 8984667 (Version 5)
Quarter: 2014Q1

REPORT INFORMATION
  Report Type: Spontaneous
  Country: US (occurrence: US)
  Receive Date: 20121226
  Receipt Date: 20140311
  Transmission Date: 20141002
  Serious: Yes (Hospitalization)
  Sender: FDA-Public Use
  Company Number: US-ASTRAZENECA-2012SE94570

PATIENT
  Age: 30 Year
  Sex: Female

DRUGS (19)
  1. NEXIUM [Suspect]
     Indication: DYSPEPSIA
     Route: 048
     Dates: start: 2004
  2. NEXIUM [Suspect]
     Indication: DYSPEPSIA
     Route: 048
     Dates: start: 200402
  3. NEXIUM [Suspect]
     Indication: DYSPEPSIA
     Dosage: ONE TABLET EVERY ONE HALF HOUR BEFORE A MAJOR MEAL
     Route: 048
     Dates: start: 20051213
  4. NEXIUM [Suspect]
     Indication: DYSPEPSIA
     Route: 048
     Dates: start: 20090217
  5. NEXIUM [Suspect]
     Indication: DYSPEPSIA
     Route: 048
     Dates: start: 2011
  6. PRILOSEC [Suspect]
     Indication: DYSPEPSIA
     Route: 048
  7. PRILOSEC [Suspect]
     Indication: DYSPEPSIA
     Route: 048
     Dates: start: 2004
  8. PRILOSEC [Suspect]
     Indication: DYSPEPSIA
     Route: 048
     Dates: start: 20120724
  9. CYMBALTA [Concomitant]
     Dates: start: 20080404
  10. LYRICA [Concomitant]
     Dates: start: 20080404
  11. AMBIEN [Concomitant]
     Dates: start: 20080404
  12. FLEXERIL [Concomitant]
     Indication: MUSCLE SPASMS
     Dates: start: 20080404
  13. DEPO PROVERA [Concomitant]
     Dates: start: 20080404
  14. BENTYL [Concomitant]
     Dates: start: 20080404
  15. WELLBUTRIN XL [Concomitant]
     Dates: start: 20080404
  16. INDERAL LA [Concomitant]
     Route: 048
     Dates: start: 20080404
  17. VITAMIN D [Concomitant]
     Dates: start: 20100712
  18. ZANTAC [Concomitant]
  19. TUMS [Concomitant]

REACTIONS (10)
  - Gallbladder disorder [Unknown]
  - Gastrointestinal disorder [Unknown]
  - Osteoporosis [Unknown]
  - Bone disorder [Unknown]
  - Multiple fractures [Unknown]
  - Joint injury [Unknown]
  - Fibula fracture [Unknown]
  - Back pain [Unknown]
  - Fall [Unknown]
  - Ankle fracture [Unknown]
